FAERS Safety Report 11483497 (Version 1)
Quarter: 2015Q3

REPORT INFORMATION
  Report Type: Spontaneous
  Country: US (occurrence: US)
  Receive Date: 20150903
  Receipt Date: 20150903
  Transmission Date: 20151125
  Serious: No
  Sender: FDA-Public Use
  Company Number: US-ELI_LILLY_AND_COMPANY-US201207001608

PATIENT
  Age: 46 Year
  Sex: Male

DRUGS (13)
  1. MICARDIS [Concomitant]
     Active Substance: TELMISARTAN
  2. CALCIUM MAGNESIUM ZINC [Concomitant]
     Active Substance: CALCIUM\MAGNESIUM\ZINC
  3. GLEEVEC [Concomitant]
     Active Substance: IMATINIB MESYLATE
  4. ENTERIC ASPIRIN [Concomitant]
     Active Substance: ASPIRIN
  5. OMEGA 3-6-9 [Concomitant]
     Active Substance: FISH OIL
  6. XANAX [Concomitant]
     Active Substance: ALPRAZOLAM
  7. PEPCID [Concomitant]
     Active Substance: FAMOTIDINE
  8. CYMBALTA [Suspect]
     Active Substance: DULOXETINE HYDROCHLORIDE
     Indication: ANXIETY
     Dosage: 120 MG, QD
  9. B6 [Concomitant]
     Active Substance: PYRIDOXINE HYDROCHLORIDE
  10. FOLIC ACID. [Concomitant]
     Active Substance: FOLIC ACID
  11. KLONOPIN [Concomitant]
     Active Substance: CLONAZEPAM
  12. VERAPAMIL [Concomitant]
     Active Substance: VERAPAMIL HYDROCHLORIDE
  13. SPIRONOLACTONE. [Concomitant]
     Active Substance: SPIRONOLACTONE

REACTIONS (6)
  - Cold-stimulus headache [Unknown]
  - Paraesthesia [Unknown]
  - Hypoaesthesia [Unknown]
  - Wrong technique in product usage process [Unknown]
  - Headache [Unknown]
  - Drug withdrawal syndrome [Unknown]
